FAERS Safety Report 4536660-4 (Version None)
Quarter: 2004Q4

REPORT INFORMATION
  Report Type: 
  Country: None (occurrence: None)
  Receive Date: 20041222
  Receipt Date: 20041222
  Transmission Date: 20050328
  Serious: Yes (Other)
  Sender: FDA-Public Use
  Company Number: None

PATIENT
  Age: 35 Year
  Sex: Female

DRUGS (4)
  1. CORRECTOL [Suspect]
     Indication: WEIGHT CONTROL
     Dosage: ORAL
     Route: 048
  2. FEEN-A-MINT NO DOSE FORM [Suspect]
     Indication: WEIGHT CONTROL
     Dosage: ORAL
     Route: 048
  3. EX-LAX TABLETS [Suspect]
     Dosage: ORAL
     Route: 048
  4. DULCOLAX [Suspect]
     Indication: WEIGHT CONTROL
     Dosage: ORAL
     Route: 048

REACTIONS (3)
  - DRUG DEPENDENCE [None]
  - HAEMORRHOIDS [None]
  - RECTAL HAEMORRHAGE [None]
